FAERS Safety Report 14743842 (Version 1)
Quarter: 2018Q2

REPORT INFORMATION
  Report Type: Spontaneous
  Country: GB (occurrence: GB)
  Receive Date: 20180410
  Receipt Date: 20180410
  Transmission Date: 20180711
  Serious: Yes (Other)
  Sender: FDA-Public Use
  Company Number: GB-TEVA-2018-GB-880545

PATIENT
  Age: 69 Year
  Sex: Female
  Weight: 84.36 kg

DRUGS (6)
  1. LOSARTAN POTASSIUM. [Concomitant]
     Active Substance: LOSARTAN POTASSIUM
     Route: 065
  2. PARACETAMOL [Concomitant]
     Active Substance: ACETAMINOPHEN
     Route: 065
  3. DOXAZOSIN [Suspect]
     Active Substance: DOXAZOSIN\DOXAZOSIN MESYLATE
     Indication: HYPERTENSION
     Route: 048
     Dates: start: 20171010, end: 20171020
  4. LANSOPRAZOLE. [Concomitant]
     Active Substance: LANSOPRAZOLE
     Route: 065
  5. BENDROFLUMETHIAZIDE [Concomitant]
     Active Substance: BENDROFLUMETHIAZIDE
     Route: 065
  6. CELIPROLOL HYDROCHLORIDE [Concomitant]
     Active Substance: CELIPROLOL HYDROCHLORIDE
     Route: 065

REACTIONS (11)
  - Hypertension [Unknown]
  - Pain [Unknown]
  - Renal pain [Unknown]
  - Faeces pale [Unknown]
  - Feeling of despair [Recovered/Resolved with Sequelae]
  - Malaise [Unknown]
  - Asthenia [Unknown]
  - Toxicity to various agents [Unknown]
  - Cardiac disorder [Unknown]
  - Clumsiness [Unknown]
  - Anxiety [Unknown]

NARRATIVE: CASE EVENT DATE: 20171010
